FAERS Safety Report 25461877 (Version 1)
Quarter: 2025Q2

REPORT INFORMATION
  Report Type: Spontaneous
  Country: US (occurrence: None)
  Receive Date: 20250619
  Receipt Date: 20250619
  Transmission Date: 20250716
  Serious: No
  Sender: FDA-CTU
  Company Number: None

PATIENT
  Sex: Male

DRUGS (2)
  1. SERMORELIN [Suspect]
     Active Substance: SERMORELIN
     Indication: Muscle disorder
     Dosage: FREQUENCY : DAILY;?
     Route: 058
     Dates: start: 20250203, end: 20250310
  2. SERMORELIN [Suspect]
     Active Substance: SERMORELIN
     Indication: Skin disorder

REACTIONS (2)
  - Acromegaly [None]
  - Nose deformity [None]

NARRATIVE: CASE EVENT DATE: 20250310
